FAERS Safety Report 8325484-8 (Version None)
Quarter: 2012Q2

REPORT INFORMATION
  Report Type: 
  Country: None (occurrence: None)
  Receive Date: 20120501
  Receipt Date: 20100423
  Transmission Date: 20120825
  Serious: No
  Sender: FDA-Public Use
  Company Number: US-TEVA-2010002373

PATIENT
  Sex: Male

DRUGS (7)
  1. NUVIGIL [Suspect]
     Dosage: 150 MILLIGRAM;
     Route: 048
     Dates: start: 20100401, end: 20100401
  2. LIPITOR [Concomitant]
  3. MULITIVITAMIN [Concomitant]
     Indication: MEDICAL DIET
  4. NUVIGIL [Suspect]
     Indication: SOMNOLENCE
     Dosage: 75 MILLIGRAM;
     Route: 048
     Dates: start: 20100401, end: 20100401
  5. ASPIRIN [Concomitant]
     Indication: CARDIOVASCULAR EVENT PROPHYLAXIS
  6. NORVASC [Concomitant]
     Indication: BLOOD PRESSURE
  7. ATACAND [Concomitant]
     Indication: BLOOD PRESSURE

REACTIONS (1)
  - TREMOR [None]
